FAERS Safety Report 10483131 (Version 3)
Quarter: 2018Q1

REPORT INFORMATION
  Report Type: Report from Study
  Country: US (occurrence: US)
  Receive Date: 20140930
  Receipt Date: 20180327
  Transmission Date: 20180508
  Serious: Yes (Other)
  Sender: FDA-Public Use
  Company Number: US-ROCHE-1466440

PATIENT
  Sex: Male
  Weight: 87.9 kg

DRUGS (7)
  1. MIRALAX [Concomitant]
     Active Substance: POLYETHYLENE GLYCOL 3350
     Dosage: 1 CAPUL TID X 3 DAYS THEN THREE FOURTH CAP QD
     Route: 048
  2. METFORMIN [Concomitant]
     Active Substance: METFORMIN HYDROCHLORIDE
     Route: 048
     Dates: start: 201512
  3. ACETAMINOPHEN. [Concomitant]
     Active Substance: ACETAMINOPHEN
  4. MIRALAX [Concomitant]
     Active Substance: POLYETHYLENE GLYCOL 3350
     Indication: CONSTIPATION
     Dosage: 1 CAPUL TID X 3 DAYS THEN THREE FOURTH CAP QD
     Route: 048
     Dates: start: 20140102
  5. POLYETHYLENE GLYCOL [Concomitant]
     Active Substance: POLYETHYLENE GLYCOLS
     Route: 065
  6. NUTROPIN AQ [Suspect]
     Active Substance: SOMATROPIN
     Indication: GROWTH HORMONE DEFICIENCY
     Dosage: 7DAYS/WEEK, INJECTION IN HIS STOMACH, ARMS AND THIGHS
     Route: 058
     Dates: start: 201111
  7. NORDITROPIN [Concomitant]
     Active Substance: SOMATROPIN

REACTIONS (20)
  - Somnambulism [Unknown]
  - Acne [Unknown]
  - Encopresis [Unknown]
  - Skin odour abnormal [Unknown]
  - Obesity [Not Recovered/Not Resolved]
  - Enuresis [Recovered/Resolved]
  - Nightmare [Unknown]
  - Skin striae [Not Recovered/Not Resolved]
  - Insulin-like growth factor increased [Unknown]
  - Obesity [Unknown]
  - Constipation [Unknown]
  - Weight increased [Not Recovered/Not Resolved]
  - Visual impairment [Not Recovered/Not Resolved]
  - Gynaecomastia [Unknown]
  - Eye movement disorder [Unknown]
  - Headache [Unknown]
  - Abnormal behaviour [Unknown]
  - Injection site bruising [Unknown]
  - Tic [Recovered/Resolved]
  - Acanthosis nigricans [Not Recovered/Not Resolved]

NARRATIVE: CASE EVENT DATE: 2012
